FAERS Safety Report 6722411-1 (Version None)
Quarter: 2010Q2

REPORT INFORMATION
  Report Type: 
  Country: None (occurrence: None)
  Receive Date: 20100506
  Receipt Date: 20080105
  Transmission Date: 20101027
  Serious: No
  Sender: FDA-Public Use
  Company Number: 2008-00008

PATIENT
  Sex: Female
  Weight: 90.7194 kg

DRUGS (2)
  1. ZICAM COLD REMEDY NASAL GEL [Suspect]
     Dosage: QD/1 DAY
     Dates: start: 20080103, end: 20080103
  2. ATENOLOL [Concomitant]

REACTIONS (2)
  - ANOSMIA [None]
  - BURNING SENSATION [None]
